FAERS Safety Report 7090354-2 (Version None)
Quarter: 2010Q4

REPORT INFORMATION
  Report Type: 
  Country: None (occurrence: None)
  Receive Date: 20101109
  Receipt Date: 20101025
  Transmission Date: 20110411
  Serious: Yes (Other)
  Sender: FDA-Public Use
  Company Number: PHHY2010TW39884

PATIENT
  Sex: Female

DRUGS (3)
  1. TASIGNA [Suspect]
     Indication: GASTROINTESTINAL STROMAL TUMOUR
     Dosage: 400 MG, UNK
     Route: 048
  2. TASIGNA [Suspect]
     Dosage: 800 MG, UNK
  3. GLEEVEC [Concomitant]
     Indication: GASTROINTESTINAL STROMAL TUMOUR
     Dosage: 600 MG, UNK
     Route: 048

REACTIONS (5)
  - DECREASED APPETITE [None]
  - EYE PRURITUS [None]
  - PRURITUS [None]
  - RASH [None]
  - RETINAL DETACHMENT [None]
